FAERS Safety Report 24146983 (Version 1)
Quarter: 2024Q3

REPORT INFORMATION
  Report Type: Spontaneous
  Country: PT (occurrence: PT)
  Receive Date: 20240729
  Receipt Date: 20240729
  Transmission Date: 20241017
  Serious: Yes (Hospitalization, Other)
  Sender: TEVA
  Company Number: PT-TEVA-VS-3223097

PATIENT
  Age: 63 Year
  Sex: Male

DRUGS (1)
  1. CIPROFLOXACIN [Suspect]
     Active Substance: CIPROFLOXACIN
     Indication: Urinary retention
     Dosage: COMPLETED A 14-DAY CYCLE
     Route: 065

REACTIONS (1)
  - Drug-induced liver injury [Unknown]
